FAERS Safety Report 8433196-5 (Version None)
Quarter: 2012Q2

REPORT INFORMATION
  Report Type: 
  Country: None (occurrence: None)
  Receive Date: 20120613
  Receipt Date: 20120511
  Transmission Date: 20120825
  Serious: Yes (Other)
  Sender: FDA-Public Use
  Company Number: JP-GLAXOSMITHKLINE-B0801471A

PATIENT
  Sex: Female

DRUGS (2)
  1. TRACLEER [Concomitant]
     Dosage: 250MG PER DAY
     Route: 048
     Dates: start: 20071101
  2. FLOLAN [Suspect]
     Indication: PULMONARY HYPERTENSION
     Route: 042
     Dates: start: 20080301

REACTIONS (2)
  - HYPERTHYROIDISM [None]
  - BASEDOW'S DISEASE [None]
